FAERS Safety Report 11167713 (Version 1)
Quarter: 2015Q2

REPORT INFORMATION
  Report Type: Spontaneous
  Country: US (occurrence: None)
  Receive Date: 20150515
  Receipt Date: 20150515
  Transmission Date: 20150821
  Serious: Yes (Other)
  Sender: FDA-Public Use
  Company Number: 2014017265

PATIENT
  Age: 60 Year
  Sex: Male

DRUGS (8)
  1. ALBUTEROL SULFATE (ALBUTEROL SULFATE) [Concomitant]
  2. CELEBREX [Concomitant]
     Active Substance: CELECOXIB
  3. ADVAIR DISKUS [Concomitant]
     Active Substance: FLUTICASONE PROPIONATE\SALMETEROL XINAFOATE
  4. CIMZIA [Suspect]
     Active Substance: CERTOLIZUMAB PEGOL
     Indication: RHEUMATOID ARTHRITIS
     Dates: start: 201401
  5. ALEVE [Concomitant]
     Active Substance: NAPROXEN SODIUM
  6. AMOXICILLIN CLAVULANIC ACID (AMOXICILLIN TRIHYDRATE, CLAVULANATE POTASSIUM) [Concomitant]
  7. PREDNISONE (PREDNISONE ACETATE) [Concomitant]
  8. MOBIC [Concomitant]
     Active Substance: MELOXICAM

REACTIONS (3)
  - Back pain [None]
  - Cellulitis [None]
  - Sinusitis [None]

NARRATIVE: CASE EVENT DATE: 2014
